FAERS Safety Report 22193294 (Version 1)
Quarter: 2023Q2

REPORT INFORMATION
  Report Type: Spontaneous
  Country: IN (occurrence: IN)
  Receive Date: 20230410
  Receipt Date: 20230410
  Transmission Date: 20230722
  Serious: Yes (Other)
  Sender: FDA-Public Use
  Company Number: IN-MYLANLABS-2023M1038041

PATIENT
  Age: 65 Year
  Sex: Female

DRUGS (2)
  1. FLUOROURACIL [Suspect]
     Active Substance: FLUOROURACIL
     Indication: Squamous cell carcinoma of the oral cavity
     Dosage: 500 MILLIGRAM, CYCLE, WEEKLY FOR THREE CYCLES
     Route: 042
  2. METHOTREXATE [Suspect]
     Active Substance: METHOTREXATE
     Indication: Squamous cell carcinoma of the oral cavity
     Dosage: 50 MILLIGRAM, CYCLE, WEEKLY FOR THREE CYCLES
     Route: 042

REACTIONS (1)
  - Cataract [Recovering/Resolving]
